FAERS Safety Report 10379590 (Version 1)
Quarter: 2014Q3

REPORT INFORMATION
  Report Type: Report from Study
  Country: US (occurrence: US)
  Receive Date: 20140812
  Receipt Date: 20140812
  Transmission Date: 20150326
  Serious: Yes (Other)
  Sender: FDA-Public Use
  Company Number: PHHY2014US097200

PATIENT
  Age: 63 Year

DRUGS (4)
  1. ZOLEDRONIC ACID [Suspect]
     Active Substance: ZOLEDRONIC ACID
     Dosage: 4 MG, EVERY 28 DAYS
     Route: 042
     Dates: start: 20110401, end: 20110627
  2. DEXAMETHASONE. [Suspect]
     Active Substance: DEXAMETHASONE
     Dosage: 20 MG, 1 CYCLE
     Route: 048
     Dates: start: 20110627, end: 20110718
  3. BORTEZOMIB [Suspect]
     Active Substance: BORTEZOMIB
     Dosage: 3.3 MG, EVERY 28 DAYS A CYCLE
     Route: 042
     Dates: start: 20110627, end: 20110718
  4. CYCLOPHOSPHAMIDE. [Suspect]
     Active Substance: CYCLOPHOSPHAMIDE
     Dosage: 650 MG, UNK
     Route: 048
     Dates: start: 20110627, end: 20110718

REACTIONS (3)
  - Serratia sepsis [Unknown]
  - Hypotension [Unknown]
  - Dehydration [Unknown]

NARRATIVE: CASE EVENT DATE: 20110928
